FAERS Safety Report 9386896 (Version 1)
Quarter: 2013Q3

REPORT INFORMATION
  Report Type: Spontaneous
  Country: DE (occurrence: None)
  Receive Date: 20130702
  Receipt Date: 20130702
  Transmission Date: 20140515
  Serious: No
  Sender: FDA-Public Use
  Company Number: JPI-P-033250

PATIENT
  Age: 38 Year
  Sex: Female

DRUGS (6)
  1. XYREM [Suspect]
     Indication: NARCOLEPSY
     Dosage: 7.5 GM (7.5 GM, 1 IN 1D) ORAL
     Route: 048
     Dates: start: 20090616, end: 20090901
  2. CLOMIPRAMINE HYDROCHLORIDE [Concomitant]
  3. TRIMIPRAMINE [Concomitant]
  4. METHYLPHENIDATE HYDROCHLORIDE [Concomitant]
  5. HYDROXYCHLOROQUINE SULFATE [Concomitant]
  6. CLARITHROMYCIN [Concomitant]

REACTIONS (1)
  - Intervertebral disc protrusion [None]
